FAERS Safety Report 19566640 (Version 2)
Quarter: 2021Q4

REPORT INFORMATION
  Report Type: Spontaneous
  Country: RU (occurrence: RU)
  Receive Date: 20210715
  Receipt Date: 20211210
  Transmission Date: 20220303
  Serious: Yes (Other)
  Sender: FDA-Public Use
  Company Number: RU-JNJFOC-20210724301

PATIENT
  Age: 43 Year
  Sex: Male
  Weight: 45 kg

DRUGS (11)
  1. SIRTURO [Suspect]
     Active Substance: BEDAQUILINE FUMARATE
     Indication: Tuberculosis
     Dosage: 400 UNITS NOT REPORTED
     Route: 048
     Dates: start: 20210519
  2. PREZISTA [Suspect]
     Active Substance: DARUNAVIR ETHANOLATE
     Indication: HIV infection
     Dosage: 800 UNITS NOT REPORTED
     Route: 048
     Dates: start: 20210518, end: 20210617
  3. LINEZOLID [Suspect]
     Active Substance: LINEZOLID
     Indication: Tuberculosis
     Dosage: 600 UNITS NOT REPORTED
     Route: 065
     Dates: start: 20210519
  4. LEVOFLOXACIN [Suspect]
     Active Substance: LEVOFLOXACIN
     Indication: Tuberculosis
     Dosage: 750 UNITS NOT REPORTED
     Route: 065
     Dates: start: 20210519
  5. CEFOXITIN [Suspect]
     Active Substance: CEFOXITIN SODIUM
     Indication: Tuberculosis
     Dosage: 100 UNITS NOT REPORTED
     Route: 065
     Dates: start: 20210519
  6. LAMIVUDINE [Suspect]
     Active Substance: LAMIVUDINE
     Indication: HIV infection
     Dosage: 300 UNITS NOT REPORTED
     Route: 048
     Dates: start: 20210518, end: 20210617
  7. TENOFOVIR DISOPROXIL [Suspect]
     Active Substance: TENOFOVIR DISOPROXIL
     Indication: HIV infection
     Dosage: 300 UNITS NOT REPORTED
     Route: 048
     Dates: start: 20210518, end: 20210617
  8. RITONAVIR [Suspect]
     Active Substance: RITONAVIR
     Indication: HIV infection
     Dosage: 100 UNITS NOT REPORTED
     Route: 048
     Dates: start: 20210518, end: 20210617
  9. RALTEGRAVIR [Suspect]
     Active Substance: RALTEGRAVIR
     Indication: HIV infection
     Dosage: 800 UNITS NOT REPORTED
     Route: 048
     Dates: start: 20210518, end: 20210617
  10. FLUCONAZOLE [Suspect]
     Active Substance: FLUCONAZOLE
     Indication: Product used for unknown indication
     Route: 065
     Dates: start: 20210430
  11. COTRIMOXAZOLE [Suspect]
     Active Substance: SULFAMETHOXAZOLE\TRIMETHOPRIM
     Indication: Product used for unknown indication
     Route: 065
     Dates: start: 20210430, end: 20210617

REACTIONS (1)
  - Anaemia [Recovered/Resolved]

NARRATIVE: CASE EVENT DATE: 20210602
